FAERS Safety Report 24633159 (Version 1)
Quarter: 2024Q4

REPORT INFORMATION
  Report Type: Spontaneous
  Country: US (occurrence: US)
  Receive Date: 20241118
  Receipt Date: 20241118
  Transmission Date: 20250114
  Serious: No
  Sender: CHIESI
  Company Number: US-CHIESI-2023CHF05895

PATIENT
  Sex: Male

DRUGS (1)
  1. REVCOVI [Suspect]
     Active Substance: ELAPEGADEMASE-LVLR
     Indication: Combined immunodeficiency
     Dosage: 3 ML (4.8MG), 2 X WEEKLY
     Route: 065
     Dates: start: 20210824

REACTIONS (1)
  - Cough [Not Recovered/Not Resolved]
